FAERS Safety Report 10276383 (Version 1)
Quarter: 2014Q3

REPORT INFORMATION
  Report Type: Spontaneous
  Country: US (occurrence: US)
  Receive Date: 20140703
  Receipt Date: 20140703
  Transmission Date: 20150326
  Serious: Yes (Other)
  Sender: FDA-Public Use
  Company Number: US-BAYER-2014-099617

PATIENT
  Age: 40 Year
  Sex: Female

DRUGS (1)
  1. MIRENA [Suspect]
     Active Substance: LEVONORGESTREL
     Dosage: 20 MCG/24HR, CONT
     Route: 015
     Dates: start: 20071114, end: 20120305

REACTIONS (8)
  - General physical health deterioration [None]
  - Injury [None]
  - Pain [None]
  - Uterine perforation [None]
  - Anhedonia [None]
  - Abdominal pain lower [None]
  - Device dislocation [None]
  - Activities of daily living impaired [None]

NARRATIVE: CASE EVENT DATE: 201111
